FAERS Safety Report 6812359-6 (Version None)
Quarter: 2010Q3

REPORT INFORMATION
  Report Type: 
  Country: None (occurrence: None)
  Receive Date: 20100701
  Receipt Date: 20100621
  Transmission Date: 20110219
  Serious: Yes (Other)
  Sender: FDA-Public Use
  Company Number: US-WYE-H15774310

PATIENT

DRUGS (2)
  1. PROTONIX [Suspect]
     Dosage: UNKNOWN
     Route: 048
  2. PLAVIX [Suspect]
     Dosage: UNKNOWN

REACTIONS (1)
  - CONTUSION [None]
